FAERS Safety Report 10240600 (Version 4)
Quarter: 2015Q2

REPORT INFORMATION
  Report Type: Spontaneous
  Country: US (occurrence: US)
  Receive Date: 20140617
  Receipt Date: 20150413
  Transmission Date: 20150821
  Serious: Yes (Disabling)
  Sender: FDA-Public Use
  Company Number: US-009507513-1406USA007334

PATIENT
  Sex: Male
  Weight: 92.15 kg

DRUGS (1)
  1. PROPECIA [Suspect]
     Active Substance: FINASTERIDE
     Indication: ALOPECIA
     Dosage: 1 MG, UNK
     Route: 048
     Dates: start: 2000, end: 2008

REACTIONS (13)
  - Cognitive disorder [Unknown]
  - Anxiety [Not Recovered/Not Resolved]
  - Reproductive tract disorder [Unknown]
  - Ejaculation failure [Unknown]
  - Depression [Not Recovered/Not Resolved]
  - Erectile dysfunction [Not Recovered/Not Resolved]
  - Sexual dysfunction [Unknown]
  - Testicular disorder [Unknown]
  - Spermatocele [Not Recovered/Not Resolved]
  - Hydrocele [Unknown]
  - Ejaculation disorder [Unknown]
  - Libido decreased [Unknown]
  - Seasonal allergy [Unknown]

NARRATIVE: CASE EVENT DATE: 2004
